FAERS Safety Report 4984504-9 (Version None)
Quarter: 2006Q2

REPORT INFORMATION
  Report Type: 
  Country: None (occurrence: None)
  Receive Date: 20060420
  Receipt Date: 20060405
  Transmission Date: 20061013
  Serious: Yes (Hospitalization)
  Sender: FDA-Public Use
  Company Number: 6020490

PATIENT
  Age: 1 Day
  Sex: Male

DRUGS (5)
  1. BISOPROLOL FUMARATE [Suspect]
     Indication: DRUG EXPOSURE DURING PREGNANCY
     Dosage: 10 MG (10 MG, 1 IN 1 D) TRANSPLACENTAL
     Route: 064
     Dates: end: 20060112
  2. NEORAL [Suspect]
     Indication: DRUG EXPOSURE DURING PREGNANCY
     Dosage: 250 MG (250 MG, 1 IN 1 D) TRANSPLACENTAL
     Route: 064
     Dates: end: 20060112
  3. NIFEDIPINE [Suspect]
     Indication: DRUG EXPOSURE DURING PREGNANCY
     Dosage: 30 MG (30 MG, 1 IN 1 D) TRANSPLACENTAL
     Route: 064
     Dates: end: 20060111
  4. CELESTONE [Concomitant]
  5. PREDNISONE TAB [Concomitant]

REACTIONS (15)
  - CYTOMEGALOVIRUS INFECTION [None]
  - DRUG EXPOSURE DURING PREGNANCY [None]
  - FOETAL GROWTH RETARDATION [None]
  - FOETAL HEART RATE DECELERATION [None]
  - FOETAL MOVEMENTS DECREASED [None]
  - HYPERCREATININAEMIA [None]
  - LABORATORY TEST INTERFERENCE [None]
  - LEUKOPENIA NEONATAL [None]
  - NEONATAL DISORDER [None]
  - NEONATAL INFECTION [None]
  - RENAL FAILURE NEONATAL [None]
  - THROMBOCYTOPENIA NEONATAL [None]
  - UMBILICAL CORD ABNORMALITY [None]
  - VERTICAL INFECTION TRANSMISSION [None]
  - VIRAL INFECTION [None]
